FAERS Safety Report 9803318 (Version 1)
Quarter: 2014Q1

REPORT INFORMATION
  Report Type: Spontaneous
  Country: GB (occurrence: GB)
  Receive Date: 20140108
  Receipt Date: 20140108
  Transmission Date: 20141002
  Serious: Yes (Life-Threatening, Hospitalization, Disabling)
  Sender: FDA-Public Use
  Company Number: GB-BAYER-2014-000328

PATIENT
  Age: 49 Year
  Sex: Female

DRUGS (6)
  1. ACETYLSALICYLIC ACID (} 100 MG) [Suspect]
     Dosage: UNK
     Dates: end: 20130824
  2. CITALOPRAM [Concomitant]
     Dosage: UNK
     Dates: start: 20121003
  3. DIORALYTE [Concomitant]
     Dosage: UNK
     Dates: start: 20130822
  4. DOMPERIDONE [Concomitant]
  5. SALBUTAMOL [Concomitant]
     Dosage: UNK
     Dates: start: 20010504
  6. SERETIDE [Concomitant]
     Dosage: UNK
     Dates: start: 20070301

REACTIONS (10)
  - Abdominal pain [Unknown]
  - Haematemesis [Unknown]
  - Confusional state [Unknown]
  - Diarrhoea [Unknown]
  - Gastrointestinal haemorrhage [Recovered/Resolved]
  - Ischaemic cerebral infarction [Unknown]
  - Ischaemic stroke [Recovered/Resolved with Sequelae]
  - Oesophagitis [Unknown]
  - Pulmonary embolism [Unknown]
  - Ulcer [Unknown]
